FAERS Safety Report 4678139-5 (Version None)
Quarter: 2005Q2

REPORT INFORMATION
  Report Type: 
  Country: None (occurrence: None)
  Receive Date: 20050527
  Receipt Date: 20050518
  Transmission Date: 20051028
  Serious: Yes (Life-Threatening, Hospitalization, Other)
  Sender: FDA-Public Use
  Company Number: 2005056055

PATIENT
  Age: 81 Year
  Sex: Female
  Weight: 40 kg

DRUGS (13)
  1. NORVASC [Suspect]
     Indication: HYPERTENSION
     Dosage: 5 MG (QD), ORAL
     Route: 048
     Dates: start: 20041108, end: 20050330
  2. ESTAZOLAM [Suspect]
     Indication: INSOMNIA
     Dosage: 2 MG (QD), ORAL
     Route: 048
     Dates: start: 20041108, end: 20050330
  3. SELBEX (TEPRENONE) [Concomitant]
  4. CEROCRAL (IFENPRODIL TARTRATE) [Concomitant]
  5. THIAMINE HCL [Concomitant]
  6. TAKEPRON (LANSOPRAZOLE) [Concomitant]
  7. FLAVITAN (FLAVINE ADENINE DINUCLEOTIDE) [Concomitant]
  8. PYDOXAL (PYRIDOXAL PHOSPHATE) [Concomitant]
  9. FAMOTIDINE [Concomitant]
  10. ASPIRIN [Concomitant]
  11. ALDACTONE [Concomitant]
  12. MAGNESIUM OXIDE (MAGNESIUM OXIDE) [Concomitant]
  13. RABEPRAZOLE SODIUM [Concomitant]

REACTIONS (10)
  - BRADYCARDIA [None]
  - CARDIAC ARREST [None]
  - CONDITION AGGRAVATED [None]
  - DEHYDRATION [None]
  - DYSPHAGIA [None]
  - EATING DISORDER [None]
  - ELECTROLYTE IMBALANCE [None]
  - HYPERKALAEMIA [None]
  - HYPONATRAEMIA [None]
  - RENAL FAILURE CHRONIC [None]
